FAERS Safety Report 21264637 (Version 1)
Quarter: 2022Q3

REPORT INFORMATION
  Report Type: Report from Study
  Country: US (occurrence: US)
  Receive Date: 20220829
  Receipt Date: 20220829
  Transmission Date: 20221027
  Serious: Yes (Hospitalization, Other)
  Sender: FDA-Public Use
  Company Number: US-BRISTOL-MYERS SQUIBB COMPANY-2022-093164

PATIENT
  Age: 64 Year
  Sex: Male
  Weight: 90.2 kg

DRUGS (13)
  1. REVLIMID [Suspect]
     Active Substance: LENALIDOMIDE
     Indication: Plasma cell myeloma
     Dosage: 21 DAYS ON, 7 DAYS OFF
     Route: 048
     Dates: start: 20110628, end: 20111010
  2. REVLIMID [Suspect]
     Active Substance: LENALIDOMIDE
     Dosage: 21 DAYS ON, 7 DAYS OFF
     Route: 048
     Dates: start: 20111220, end: 20120919
  3. REVLIMID [Suspect]
     Active Substance: LENALIDOMIDE
     Dosage: 14 DAYS ON, 7 DAYS OFF
     Route: 048
     Dates: start: 20160204, end: 20160425
  4. REVLIMID [Suspect]
     Active Substance: LENALIDOMIDE
     Dosage: 21 DAYS ON, 7 DAYS OFF
     Route: 048
     Dates: start: 20170424
  5. CARFILZOMIB [Suspect]
     Active Substance: CARFILZOMIB
     Indication: Plasma cell myeloma
     Route: 042
     Dates: start: 20211101
  6. DARZALEX [Suspect]
     Active Substance: DARATUMUMAB
     Indication: Plasma cell myeloma
     Dosage: 3.5 MONTHS
     Route: 065
     Dates: start: 20210111
  7. DECADRON [Concomitant]
     Active Substance: DEXAMETHASONE
     Indication: Product used for unknown indication
     Dosage: DAY 1,8,15,22
     Route: 048
     Dates: start: 20110628, end: 20111011
  8. DECADRON [Concomitant]
     Active Substance: DEXAMETHASONE
     Dosage: DAYS 1,8,15,22 EVERY 28DAYS
     Route: 048
     Dates: start: 20111220, end: 20120919
  9. DECADRON [Concomitant]
     Active Substance: DEXAMETHASONE
     Dosage: DAY 1, 8 15 X 4 CYCLES
     Route: 048
     Dates: start: 20160204, end: 20160425
  10. DECADRON [Concomitant]
     Active Substance: DEXAMETHASONE
     Dosage: 30 MINS PRIOR TO CYTOXAN
     Route: 042
     Dates: start: 20111103, end: 20111103
  11. MELPHALAN [Concomitant]
     Active Substance: MELPHALAN
     Indication: Product used for unknown indication
     Route: 042
     Dates: start: 20160703, end: 20160703
  12. CYTOXAN [Concomitant]
     Active Substance: CYCLOPHOSPHAMIDE
     Indication: Product used for unknown indication
     Dosage: 1 X DOSE PRIOR TO STEM CELL HARVEST
     Route: 042
     Dates: start: 20111103, end: 20111103
  13. VELCADE [Concomitant]
     Active Substance: BORTEZOMIB
     Indication: Product used for unknown indication
     Dosage: DAYS 1, 8, 15 FOR 4 CYCLES
     Route: 058
     Dates: start: 20160204, end: 20160425

REACTIONS (11)
  - Pneumonia [Recovered/Resolved]
  - Sepsis [Recovered/Resolved]
  - Hypotension [Unknown]
  - Anaemia [Unknown]
  - Thrombocytopenia [Unknown]
  - Hypocalcaemia [Unknown]
  - Leukocytosis [Unknown]
  - Hypoalbuminaemia [Unknown]
  - Confusional state [Unknown]
  - Syncope [Unknown]
  - Off label use [Unknown]

NARRATIVE: CASE EVENT DATE: 20220307
